FAERS Safety Report 9719197 (Version 1)
Quarter: 2013Q4

REPORT INFORMATION
  Report Type: Spontaneous
  Country: DE (occurrence: DE)
  Receive Date: 20131127
  Receipt Date: 20131127
  Transmission Date: 20140711
  Serious: Yes (Other)
  Sender: FDA-Public Use
  Company Number: GXKR2013DE003657

PATIENT
  Sex: 0

DRUGS (2)
  1. AMITRIPTYLINE [Suspect]
     Indication: FIBROMYALGIA
     Dosage: 25, UKN, FOR YEARS
  2. ARCOXIA [Suspect]
     Indication: FIBROMYALGIA
     Dates: start: 20130723, end: 20131008

REACTIONS (3)
  - Chest discomfort [Recovered/Resolved]
  - Circulatory collapse [Recovered/Resolved]
  - Dry mouth [Recovered/Resolved]
